FAERS Safety Report 20290417 (Version 1)
Quarter: 2022Q1

REPORT INFORMATION
  Report Type: Spontaneous
  Country: US (occurrence: US)
  Receive Date: 20220104
  Receipt Date: 20220104
  Transmission Date: 20220423
  Serious: No
  Sender: FDA-Public Use
  Company Number: US-GLENMARK PHARMACEUTICALS-2021GMK068817

PATIENT

DRUGS (5)
  1. TACROLIMUS [Suspect]
     Active Substance: TACROLIMUS
     Indication: Precancerous cells present
     Dosage: UNK, BID
     Route: 061
     Dates: start: 202101, end: 202107
  2. IMIQUIMOD [Suspect]
     Active Substance: IMIQUIMOD
     Indication: Precancerous cells present
     Dosage: UNK
     Route: 061
  3. IMIQUIMOD [Suspect]
     Active Substance: IMIQUIMOD
     Indication: Actinic keratosis
     Dosage: UNK, ONCE A DAY FOR FIVE DAYS A WEEK
     Route: 061
     Dates: start: 20211009, end: 20211105
  4. LEVOTHYROXINE [Concomitant]
     Active Substance: LEVOTHYROXINE
     Indication: Thyroid disorder
     Dosage: UNK
     Route: 065
  5. VALIUM [Concomitant]
     Active Substance: DIAZEPAM
     Indication: Chronic obstructive pulmonary disease
     Dosage: UNK
     Route: 065

REACTIONS (12)
  - Product use in unapproved indication [Unknown]
  - Application site scab [Unknown]
  - Wound secretion [Unknown]
  - Parosmia [Unknown]
  - Inappropriate schedule of product administration [Unknown]
  - Wrong technique in product usage process [Unknown]
  - Taste disorder [Unknown]
  - Nausea [Unknown]
  - Dyspepsia [Unknown]
  - Erythema [Recovering/Resolving]
  - Hypersensitivity [Recovering/Resolving]
  - Drug ineffective [Unknown]

NARRATIVE: CASE EVENT DATE: 20210101
